FAERS Safety Report 11722627 (Version 1)
Quarter: 2015Q4

REPORT INFORMATION
  Report Type: Spontaneous
  Country: US (occurrence: None)
  Receive Date: 20151110
  Receipt Date: 20151110
  Transmission Date: 20160304
  Serious: No
  Sender: FDA-Public Use
  Company Number: None

PATIENT
  Sex: Male

DRUGS (1)
  1. METOPROLOL [Suspect]
     Active Substance: METOPROLOL

REACTIONS (6)
  - Pneumonia [None]
  - Head injury [None]
  - Product substitution issue [None]
  - Cardiac failure congestive [None]
  - Brain injury [None]
  - Fall [None]
